FAERS Safety Report 8443571-0 (Version None)
Quarter: 2012Q2

REPORT INFORMATION
  Report Type: 
  Country: None (occurrence: None)
  Receive Date: 20120618
  Receipt Date: 20120608
  Transmission Date: 20120825
  Serious: No
  Sender: FDA-Public Use
  Company Number: US-PFIZER INC-2012120396

PATIENT
  Sex: Female

DRUGS (2)
  1. OXYCODONE [Concomitant]
     Indication: ROAD TRAFFIC ACCIDENT
     Dosage: UNK
  2. PREMARIN [Suspect]
     Indication: HORMONE REPLACEMENT THERAPY
     Dosage: UNK

REACTIONS (6)
  - CONDITION AGGRAVATED [None]
  - WRONG TECHNIQUE IN DRUG USAGE PROCESS [None]
  - NERVOUSNESS [None]
  - MENOPAUSE [None]
  - PAIN [None]
  - INTENTIONAL DRUG MISUSE [None]
